FAERS Safety Report 7558176-3 (Version None)
Quarter: 2011Q2

REPORT INFORMATION
  Report Type: 
  Country: None (occurrence: None)
  Receive Date: 20110620
  Receipt Date: 20110608
  Transmission Date: 20111010
  Serious: Yes (Other)
  Sender: FDA-Public Use
  Company Number: US-CELGENEUS-163-C5013-11020679

PATIENT
  Sex: Male
  Weight: 82.3 kg

DRUGS (22)
  1. THALIDOMIDE [Suspect]
     Dosage: 200 MILLIGRAM
     Route: 048
     Dates: start: 20101020, end: 20101022
  2. ZOMETA [Concomitant]
     Indication: BONE LOSS
     Dosage: 2 MILLIGRAM
     Route: 051
     Dates: start: 20090805, end: 20090805
  3. ACETAMINOPHEN [Concomitant]
     Indication: CHILLS
     Dosage: 650 MILLIGRAM
     Route: 048
     Dates: start: 20090815, end: 20090815
  4. PREDNISONE [Suspect]
     Dosage: 195 MILLIGRAM
     Route: 065
     Dates: start: 20101020, end: 20101022
  5. PRILOSEC [Concomitant]
     Dosage: 20 MILLIGRAM
     Route: 048
     Dates: start: 20090715
  6. PROCRIT [Concomitant]
     Dosage: 40000 MILLIGRAM
     Route: 058
     Dates: start: 20090701
  7. ANTIBIOTICS [Concomitant]
     Indication: PROPHYLAXIS
     Route: 048
     Dates: start: 20100113, end: 20100113
  8. MELPHALAN HYDROCHLORIDE [Suspect]
     Dosage: 6 MILLIGRAM
     Route: 065
     Dates: start: 20101020, end: 20101022
  9. PREDNISONE [Suspect]
     Indication: MULTIPLE MYELOMA
     Dosage: 195 MILLIGRAM
     Route: 065
     Dates: start: 20090729
  10. DOCUSATE [Concomitant]
     Indication: CONSTIPATION PROPHYLAXIS
     Dosage: 1 TABLET
     Route: 048
     Dates: start: 20090729
  11. SENNA-MINT WAF [Concomitant]
     Indication: CONSTIPATION PROPHYLAXIS
     Dosage: 1 TABLET
     Route: 048
     Dates: start: 20090729
  12. ACETAMINOPHEN [Concomitant]
     Indication: TOOTH ABSCESS
  13. THALIDOMIDE [Suspect]
     Indication: MULTIPLE MYELOMA
     Dosage: 50 MILLIGRAM
     Route: 048
     Dates: start: 20090729
  14. ACETAMINOPHEN [Concomitant]
     Indication: BACK PAIN
  15. MELPHALAN HYDROCHLORIDE [Suspect]
     Indication: MULTIPLE MYELOMA
     Dosage: 24 MILLIGRAM
     Route: 065
     Dates: start: 20090729
  16. ACETAMINOPHEN [Concomitant]
     Dosage: 650 MILLIGRAM
     Route: 048
     Dates: start: 20090802, end: 20090806
  17. PAMIDRONATE DISODIUM [Concomitant]
     Indication: BONE LOSS
     Dosage: 30 MILLIGRAM
     Route: 051
     Dates: start: 20090923
  18. EPOETIN ALFA [Concomitant]
     Dosage: 40000 IU (INTERNATIONAL UNIT)
     Route: 058
     Dates: start: 20090916, end: 20091021
  19. PRILOSEC [Concomitant]
  20. ACETAMINOPHEN [Concomitant]
     Indication: PREMEDICATION
     Dosage: 650 MILLIGRAM
     Route: 048
     Dates: start: 20090815, end: 20091021
  21. ASPIRIN [Concomitant]
     Indication: THROMBOSIS PROPHYLAXIS
     Dosage: 325 MILLIGRAM
     Route: 048
     Dates: start: 20090729
  22. VITAMIN B-12 [Concomitant]
     Route: 048
     Dates: start: 20090701

REACTIONS (1)
  - OESOPHAGEAL SQUAMOUS CELL CARCINOMA [None]
